FAERS Safety Report 9629968 (Version 1)
Quarter: 2013Q4

REPORT INFORMATION
  Report Type: Report from Study
  Country: DE (occurrence: DE)
  Receive Date: 20131017
  Receipt Date: 20131017
  Transmission Date: 20140711
  Serious: Yes (Hospitalization)
  Sender: FDA-Public Use
  Company Number: DE-TEVA-437637GER

PATIENT
  Sex: Female

DRUGS (9)
  1. DOXORUBICIN [Suspect]
     Indication: B-CELL LYMPHOMA
     Route: 042
     Dates: start: 20130924
  2. PREDNISONE [Suspect]
     Indication: B-CELL LYMPHOMA
     Dosage: 100 MILLIGRAM DAILY;
     Route: 065
  3. CYCLOPHOSPHAMIDE [Suspect]
     Indication: B-CELL LYMPHOMA
     Route: 042
     Dates: start: 20130924
  4. RITUXIMAB [Suspect]
     Indication: B-CELL LYMPHOMA
     Dosage: 648.75 MILLIGRAM DAILY;
     Route: 042
     Dates: start: 20130918
  5. LIPOSOMAL VINCRISTINE [Suspect]
     Indication: B-CELL LYMPHOMA
     Route: 042
     Dates: start: 20130924
  6. PREDNISOLONE [Concomitant]
     Route: 048
     Dates: start: 20130918
  7. DIMETINDENE MALEATE [Concomitant]
     Route: 042
  8. RANITIDINE [Concomitant]
     Route: 042
  9. PARACETAMOL [Concomitant]
     Route: 048

REACTIONS (1)
  - Dysphagia [Recovering/Resolving]
